FAERS Safety Report 22192567 (Version 1)
Quarter: 2023Q2

REPORT INFORMATION
  Report Type: Spontaneous
  Country: IT (occurrence: IT)
  Receive Date: 20230410
  Receipt Date: 20230410
  Transmission Date: 20230722
  Serious: Yes (Hospitalization)
  Sender: FDA-Public Use
  Company Number: IT-BEXIMCO-2023BEX00016

PATIENT
  Age: 8 Year
  Sex: Female
  Weight: 22 kg

DRUGS (4)
  1. BACLOFEN [Suspect]
     Active Substance: BACLOFEN
     Indication: Muscle spasticity
     Dosage: 50 ?G CONTINUOUS INFUSION
     Route: 037
  2. BACLOFEN [Suspect]
     Active Substance: BACLOFEN
     Dosage: INCREASED TO A MAXIMUM OF 150 ?G/DAY, CONTINUOUS INFUSION
     Route: 037
  3. BACLOFEN [Suspect]
     Active Substance: BACLOFEN
     Dosage: 125 ?G CONTINUOUS INFUSION
     Route: 037
  4. CARBAMAZEPINE [Concomitant]
     Active Substance: CARBAMAZEPINE
     Indication: Epilepsy

REACTIONS (5)
  - Seizure [Recovering/Resolving]
  - Dysphagia [Recovering/Resolving]
  - Somnolence [Recovering/Resolving]
  - Vomiting [Recovering/Resolving]
  - Hypotonia [Recovering/Resolving]
